FAERS Safety Report 16902356 (Version 2)
Quarter: 2019Q4

REPORT INFORMATION
  Report Type: Spontaneous
  Country: JP (occurrence: JP)
  Receive Date: 20191010
  Receipt Date: 20191111
  Transmission Date: 20200122
  Serious: Yes (Hospitalization, Other)
  Sender: FDA-Public Use
  Company Number: JP-GLAXOSMITHKLINE-JP2019JPN181091

PATIENT
  Age: 83 Year
  Sex: Male

DRUGS (4)
  1. BAYASPIRIN TABLETS [Concomitant]
     Dosage: 100 MG, 1D
     Dates: start: 200608
  2. OLMETEC TABLETS [Concomitant]
     Dosage: UNK
     Dates: start: 200705
  3. ZANTAC [Suspect]
     Active Substance: RANITIDINE HYDROCHLORIDE
     Dosage: 75 MG, QD
     Route: 048
     Dates: start: 200608, end: 201809
  4. MEVALOTIN TABLETS [Concomitant]
     Dosage: 5 MG, 1D
     Dates: start: 200509

REACTIONS (1)
  - Oesophageal carcinoma [Recovered/Resolved]
